FAERS Safety Report 11320008 (Version 4)
Quarter: 2016Q2

REPORT INFORMATION
  Report Type: Spontaneous
  Country: GB (occurrence: GB)
  Receive Date: 20150729
  Receipt Date: 20160505
  Transmission Date: 20160815
  Serious: Yes (Death)
  Sender: FDA-Public Use
  Company Number: GB-ASTRAZENECA-2015SE72884

PATIENT
  Age: 8 Month
  Sex: Female
  Weight: 7.7 kg

DRUGS (2)
  1. LOSEC [Suspect]
     Active Substance: OMEPRAZOLE
     Indication: GASTROOESOPHAGEAL REFLUX DISEASE
     Dosage: 10 MG, WITH WATER FROM A SYRINGE
     Route: 048
  2. CERATONIA [Concomitant]

REACTIONS (14)
  - Acidosis [Fatal]
  - Cardio-respiratory arrest [Fatal]
  - Dyspnoea [Fatal]
  - Incorrect product formulation administered [Fatal]
  - Off label use [Unknown]
  - Unresponsive to stimuli [Fatal]
  - Pupil fixed [Fatal]
  - Drug administered to patient of inappropriate age [Unknown]
  - Hypotonia [Fatal]
  - Anuria [Fatal]
  - Hypoxia [Fatal]
  - Wrong technique in product usage process [Unknown]
  - Aspiration [Fatal]
  - Choking [Fatal]

NARRATIVE: CASE EVENT DATE: 20150502
